FAERS Safety Report 9111256 (Version 1)
Quarter: 2013Q1

REPORT INFORMATION
  Report Type: Spontaneous
  Country: US (occurrence: US)
  Receive Date: 20130219
  Receipt Date: 20130219
  Transmission Date: 20140127
  Serious: No
  Sender: FDA-Public Use
  Company Number: US-BRISTOL-MYERS SQUIBB COMPANY-16564353

PATIENT
  Age: 63 Year
  Sex: Male

DRUGS (4)
  1. ORENCIA [Suspect]
     Indication: RHEUMATOID ARTHRITIS
     Dosage: NO OF INFUSION: 17
     Route: 042
     Dates: start: 20100624
  2. FOLIC ACID [Concomitant]
  3. METHOTREXATE [Concomitant]
  4. LISINOPRIL [Concomitant]

REACTIONS (1)
  - Psoriasis [Unknown]
